FAERS Safety Report 10879691 (Version 4)
Quarter: 2015Q2

REPORT INFORMATION
  Report Type: Spontaneous
  Country: US (occurrence: US)
  Receive Date: 20150302
  Receipt Date: 20150428
  Transmission Date: 20150821
  Serious: Yes (Hospitalization, Other)
  Sender: FDA-Public Use
  Company Number: US-009507513-1109USA01180

PATIENT
  Sex: Female
  Weight: 60.32 kg

DRUGS (3)
  1. ALENDRONATE SODIUM. [Suspect]
     Active Substance: ALENDRONATE SODIUM
     Dosage: UNK
     Route: 048
     Dates: end: 2010
  2. BONIVA [Suspect]
     Active Substance: IBANDRONATE SODIUM
     Indication: OSTEOPOROSIS
     Dosage: 150 MG, UNK
     Route: 048
     Dates: start: 20061018, end: 2010
  3. FOSAMAX [Suspect]
     Active Substance: ALENDRONATE SODIUM
     Indication: OSTEOPOROSIS
     Dosage: 70 MG, UNK
     Route: 048
     Dates: start: 20040115, end: 200605

REACTIONS (30)
  - Femur fracture [Unknown]
  - Systemic lupus erythematosus [Unknown]
  - Hand fracture [Unknown]
  - Calcium deficiency [Unknown]
  - Hypoaesthesia [Unknown]
  - Fall [Unknown]
  - Malaise [Unknown]
  - Vitamin D deficiency [Unknown]
  - Post-traumatic stress disorder [Unknown]
  - Femur fracture [Unknown]
  - Joint surgery [Unknown]
  - Herpes simplex [Unknown]
  - Influenza [Unknown]
  - Bronchial hyperreactivity [Unknown]
  - Fall [Unknown]
  - Femur fracture [Unknown]
  - Cholecystectomy [Unknown]
  - Contusion [Unknown]
  - Rotator cuff syndrome [Not Recovered/Not Resolved]
  - Gastrooesophageal reflux disease [Unknown]
  - Osteoarthritis [Unknown]
  - Joint surgery [Unknown]
  - Osteopenia [Unknown]
  - Appendicectomy [Unknown]
  - Arthropathy [Unknown]
  - Asthma [Not Recovered/Not Resolved]
  - Rheumatoid arthritis [Unknown]
  - Sciatica [Unknown]
  - Hyperlipidaemia [Unknown]
  - Fatigue [Unknown]

NARRATIVE: CASE EVENT DATE: 2004
